FAERS Safety Report 6307380-0 (Version None)
Quarter: 2009Q3

REPORT INFORMATION
  Report Type: 
  Country: None (occurrence: None)
  Receive Date: 20090807
  Receipt Date: 20080825
  Transmission Date: 20100115
  Serious: Yes (Other)
  Sender: FDA-Public Use
  Company Number: US-JNJFOC-20070502895

PATIENT
  Age: 7 Month
  Sex: Female
  Weight: 9.1627 kg

DRUGS (1)
  1. IBUPROFEN [Suspect]
     Indication: PYREXIA

REACTIONS (1)
  - HYPERSENSITIVITY [None]
